FAERS Safety Report 13774986 (Version 1)
Quarter: 2017Q3

REPORT INFORMATION
  Report Type: Spontaneous
  Country: AU (occurrence: AU)
  Receive Date: 20170721
  Receipt Date: 20170721
  Transmission Date: 20171127
  Serious: Yes (Hospitalization, Other)
  Sender: FDA-Public Use
  Company Number: AU-APOTEX-2017AP015975

PATIENT
  Age: 61 Year
  Sex: Male

DRUGS (2)
  1. RIFAXIMIN [Suspect]
     Active Substance: RIFAXIMIN
     Indication: NON-CIRRHOTIC PORTAL HYPERTENSION
     Route: 065
  2. LACTULOSE. [Suspect]
     Active Substance: LACTULOSE
     Indication: NON-CIRRHOTIC PORTAL HYPERTENSION
     Route: 065

REACTIONS (2)
  - Hepatic encephalopathy [Unknown]
  - Drug ineffective [Unknown]
